FAERS Safety Report 7251568-1 (Version None)
Quarter: 2011Q1

REPORT INFORMATION
  Report Type: 
  Country: None (occurrence: None)
  Receive Date: 20110128
  Receipt Date: 20110121
  Transmission Date: 20110831
  Serious: Yes (Other)
  Sender: FDA-Public Use
  Company Number: FR-PFIZER INC-2010176498

PATIENT
  Age: 30 Year
  Sex: Female

DRUGS (1)
  1. EFFEXOR XR [Suspect]
     Dosage: UNK
     Dates: start: 20071001

REACTIONS (6)
  - ANXIETY [None]
  - INSOMNIA [None]
  - TREMOR [None]
  - HEPATITIS FULMINANT [None]
  - HEADACHE [None]
  - ASTHENIA [None]
